FAERS Safety Report 5955397-8 (Version None)
Quarter: 2008Q4

REPORT INFORMATION
  Report Type: 
  Country: None (occurrence: None)
  Receive Date: 20081117
  Receipt Date: 20081112
  Transmission Date: 20090506
  Serious: Yes (Other)
  Sender: FDA-Public Use
  Company Number: US-ELI_LILLY_AND_COMPANY-US200811003111

PATIENT
  Sex: Female

DRUGS (6)
  1. HUMALOG [Suspect]
     Dosage: 4 U, EACH MORNING
  2. HUMALOG [Suspect]
     Dosage: 8 U, EACH EVENING
  3. HUMALOG [Suspect]
  4. HUMULIN R [Suspect]
  5. LANTUS [Concomitant]
  6. NOVOLIN [Concomitant]

REACTIONS (3)
  - ASTHENIA [None]
  - CEREBROVASCULAR ACCIDENT [None]
  - GAIT DISTURBANCE [None]
